FAERS Safety Report 6185171-1 (Version None)
Quarter: 2009Q2

REPORT INFORMATION
  Report Type: 
  Country: None (occurrence: None)
  Receive Date: 20090511
  Receipt Date: 20090430
  Transmission Date: 20091009
  Serious: Yes (Hospitalization, Other)
  Sender: FDA-Public Use
  Company Number: US-PFIZER INC-2009154361

PATIENT
  Sex: Male
  Weight: 82 kg

DRUGS (1)
  1. SUTENT [Suspect]
     Indication: METASTATIC RENAL CELL CARCINOMA
     Dosage: 12.5 MG, 3X/DAY
     Route: 048
     Dates: start: 20080801

REACTIONS (3)
  - DIPLOPIA [None]
  - HEADACHE [None]
  - HYPERTENSION [None]
